FAERS Safety Report 8165771-X (Version None)
Quarter: 2012Q1

REPORT INFORMATION
  Report Type: 
  Country: None (occurrence: None)
  Receive Date: 20120227
  Receipt Date: 20110217
  Transmission Date: 20120608
  Serious: No
  Sender: FDA-Public Use
  Company Number: US-MYLANLABS-2011S1001832

PATIENT
  Age: 29 Year
  Sex: Female

DRUGS (5)
  1. AMNESTEEM [Suspect]
     Indication: ACNE
     Route: 048
     Dates: start: 20100916, end: 20110117
  2. VITAMIN E [Concomitant]
  3. ORAL CONTRACEPTIVE NOS [Concomitant]
  4. CLARAVIS [Suspect]
  5. MULTI-VITAMIN [Concomitant]

REACTIONS (4)
  - FATIGUE [None]
  - HEADACHE [None]
  - SINUS CONGESTION [None]
  - ARTHRALGIA [None]
